FAERS Safety Report 8110938-X (Version None)
Quarter: 2012Q1

REPORT INFORMATION
  Report Type: 
  Country: None (occurrence: None)
  Receive Date: 20120203
  Receipt Date: 20110822
  Transmission Date: 20120608
  Serious: Yes (Hospitalization)
  Sender: FDA-Public Use
  Company Number: US-GLAXOSMITHKLINE-A0884284A

PATIENT
  Age: 13 Year
  Sex: Male
  Weight: 47.7 kg

DRUGS (5)
  1. DEPAKOTE [Concomitant]
     Indication: CONVULSION
     Dosage: 1250MG PER DAY
     Route: 048
     Dates: start: 20070301, end: 20070513
  2. BACITRACIN [Concomitant]
  3. KEPPRA [Concomitant]
     Indication: CONVULSION
     Route: 048
     Dates: start: 20070512, end: 20070518
  4. LAMICTAL [Suspect]
     Indication: CONVULSION
     Dosage: 25MG THREE TIMES PER DAY
     Route: 048
     Dates: start: 20070101, end: 20070512
  5. ATIVAN [Concomitant]
     Indication: CONVULSION
     Route: 042
     Dates: start: 20070507

REACTIONS (2)
  - TOXIC EPIDERMAL NECROLYSIS [None]
  - STEVENS-JOHNSON SYNDROME [None]
